FAERS Safety Report 16753497 (Version 1)
Quarter: 2019Q3

REPORT INFORMATION
  Report Type: Spontaneous
  Country: US (occurrence: US)
  Receive Date: 20190829
  Receipt Date: 20190829
  Transmission Date: 20191005
  Serious: Yes (Other)
  Sender: FDA-Public Use
  Company Number: US-ROCHE-2385406

PATIENT
  Age: 59 Year
  Sex: Female
  Weight: 53.12 kg

DRUGS (3)
  1. HERCEPTIN [Suspect]
     Active Substance: TRASTUZUMAB
     Indication: HER-2 POSITIVE BREAST CANCER
     Dosage: EVERY 3 WEEKS ;ONGOING: NO
     Route: 065
     Dates: start: 20160131
  2. EXEMESTANE. [Concomitant]
     Active Substance: EXEMESTANE
     Indication: HER-2 POSITIVE BREAST CANCER
     Dosage: ONGOING : YES
     Route: 065
     Dates: start: 20160101
  3. KADCYLA [Suspect]
     Active Substance: ADO-TRASTUZUMAB EMTANSINE
     Indication: HER-2 POSITIVE BREAST CANCER
     Dosage: EVERY 3 WEEKS ;ONGOING: YES
     Route: 065
     Dates: start: 20160722

REACTIONS (4)
  - Intracranial mass [Recovered/Resolved]
  - Vision blurred [Recovered/Resolved]
  - Metastases to central nervous system [Recovered/Resolved]
  - Dry eye [Recovered/Resolved]

NARRATIVE: CASE EVENT DATE: 20160526
